FAERS Safety Report 13252338 (Version 1)
Quarter: 2017Q1

REPORT INFORMATION
  Report Type: Spontaneous
  Country: FR (occurrence: FR)
  Receive Date: 20170220
  Receipt Date: 20170220
  Transmission Date: 20170428
  Serious: Yes (Hospitalization)
  Sender: FDA-Public Use
  Company Number: FR-009507513-1702FRA006118

PATIENT
  Age: 60 Year
  Sex: Female

DRUGS (9)
  1. SERESTA [Concomitant]
     Active Substance: OXAZEPAM
  2. ZOPICLONE [Suspect]
     Active Substance: ZOPICLONE
     Indication: POISONING
     Dosage: 60 DF, (TWO BOXES OF 30 TABLETS)ONCE
     Route: 048
     Dates: start: 20160621, end: 20160621
  3. DOMPERIDONE [Suspect]
     Active Substance: DOMPERIDONE
     Indication: POISONING
     Dosage: 5 DF, ONCE
     Route: 048
     Dates: start: 20160621, end: 20160621
  4. TOPREC [Suspect]
     Active Substance: KETOPROFEN
     Indication: POISONING
     Dosage: 10 DF, ONCE
     Route: 048
     Dates: start: 20160621, end: 20160621
  5. KLIPAL [Suspect]
     Active Substance: ACETAMINOPHEN\CODEINE PHOSPHATE
     Indication: POISONING
     Dosage: 9 DF, ONCE
     Route: 048
     Dates: start: 20160621, end: 20160621
  6. STILNOX [Suspect]
     Active Substance: ZOLPIDEM TARTRATE
     Indication: POISONING
     Dosage: 20 DF, QD
     Route: 048
     Dates: start: 20160621, end: 20160621
  7. NORSET [Suspect]
     Active Substance: MIRTAZAPINE
     Indication: DEPRESSION
     Dosage: 2 DF, ONCE
     Route: 048
     Dates: start: 20160621, end: 20160621
  8. ALPRAZOLAM. [Suspect]
     Active Substance: ALPRAZOLAM
     Indication: POISONING
     Dosage: 22 DF, ONCE
     Route: 048
     Dates: start: 20160621, end: 20160621
  9. NOCTAMIDE [Concomitant]
     Active Substance: LORMETAZEPAM

REACTIONS (4)
  - Hypertonia [Recovered/Resolved]
  - Toxicity to various agents [Recovered/Resolved]
  - Suicide attempt [Recovered/Resolved]
  - Coma [Recovered/Resolved]

NARRATIVE: CASE EVENT DATE: 20160621
